FAERS Safety Report 7551316-1 (Version None)
Quarter: 2011Q2

REPORT INFORMATION
  Report Type: 
  Country: None (occurrence: None)
  Receive Date: 20110616
  Receipt Date: 20110614
  Transmission Date: 20111010
  Serious: Yes (Other)
  Sender: FDA-Public Use
  Company Number: JP-PFIZER INC-2011130281

PATIENT
  Age: 68 Year
  Sex: Female

DRUGS (4)
  1. BISOLVON [Concomitant]
     Dosage: UNK
  2. ARTANE [Suspect]
     Dosage: 8 MG, DAILY
  3. EMPYNASE [Concomitant]
     Dosage: UNK
  4. ZOLOFT [Suspect]
     Dosage: 25 MG, DAILY

REACTIONS (1)
  - DYSKINESIA [None]
